FAERS Safety Report 19945466 (Version 6)
Quarter: 2023Q1

REPORT INFORMATION
  Report Type: Report from Study
  Country: DE (occurrence: DE)
  Receive Date: 20211012
  Receipt Date: 20230109
  Transmission Date: 20230417
  Serious: Yes (Hospitalization, Other)
  Sender: FDA-Public Use
  Company Number: DE-ROCHE-2130154

PATIENT
  Age: 47 Year
  Sex: Female

DRUGS (23)
  1. PANTOPRAZOLE [Suspect]
     Active Substance: PANTOPRAZOLE
     Indication: Product used for unknown indication
     Dosage: 20 MILLIGRAM, QD (1-0-0)
     Route: 065
  2. OCREVUS [Suspect]
     Active Substance: OCRELIZUMAB
     Indication: Relapsing-remitting multiple sclerosis
     Dosage: 300 MILLIGRAM
     Route: 042
     Dates: start: 20180515
  3. OCREVUS [Suspect]
     Active Substance: OCRELIZUMAB
     Dosage: 600 MILLIGRAM
     Route: 042
     Dates: start: 20181112
  4. OCREVUS [Suspect]
     Active Substance: OCRELIZUMAB
     Dosage: 600 MILLIGRAM
     Route: 042
     Dates: start: 20190514
  5. OCREVUS [Suspect]
     Active Substance: OCRELIZUMAB
     Dosage: NEXT DOSE: 28/MAY/2020: 600 MG
     Route: 042
     Dates: start: 20191118
  6. OCREVUS [Suspect]
     Active Substance: OCRELIZUMAB
     Dosage: 600 MILLIGRAM
     Route: 042
     Dates: start: 20201130
  7. OCREVUS [Suspect]
     Active Substance: OCRELIZUMAB
     Dosage: 600 MILLIGRAM
     Route: 042
     Dates: start: 20200528
  8. OCREVUS [Suspect]
     Active Substance: OCRELIZUMAB
     Dosage: 300 MILLIGRAM
     Route: 042
     Dates: start: 20180529
  9. OCREVUS [Suspect]
     Active Substance: OCRELIZUMAB
     Dosage: 600 MILLIGRAM
     Route: 042
  10. OCREVUS [Suspect]
     Active Substance: OCRELIZUMAB
     Dosage: 600 MILLIGRAM (186 DAY)
     Route: 042
     Dates: start: 20210630
  11. ALLOPURINOL [Concomitant]
     Active Substance: ALLOPURINOL
     Dosage: 150 MILLIGRAM, QD
     Route: 065
  12. CANDESARTAN [Concomitant]
     Active Substance: CANDESARTAN
     Dosage: 5 MILLIGRAM, QD (1-0-0)
     Route: 065
  13. VIMPAT [Concomitant]
     Active Substance: LACOSAMIDE
     Indication: Epilepsy
     Dosage: 50 MILLIGRAM (1-0-1)(0.5 DAY)
     Route: 048
  14. GABAPENTIN [Concomitant]
     Active Substance: GABAPENTIN
     Indication: Muscle spasticity
     Dosage: 300 MILLIGRAM 0.5 DAY (1-0-1)
     Route: 065
  15. GABAPENTIN [Concomitant]
     Active Substance: GABAPENTIN
     Dosage: 300 MILLIGRAM  0.33 DAY (1-1-1)
     Route: 065
  16. GABAPENTIN [Concomitant]
     Active Substance: GABAPENTIN
     Dosage: 600 MILLIGRAM, 0.5 DAY, 1-0-1
     Route: 065
  17. ALLERGOSPASMIN [Concomitant]
     Dosage: UNK
     Route: 065
  18. CITALOPRAM [Concomitant]
     Active Substance: CITALOPRAM HYDROBROMIDE
     Indication: Depression
     Dosage: 10 MILLIGRAM, QD (1-0-0)
     Route: 048
  19. BACLOFEN [Concomitant]
     Active Substance: BACLOFEN
     Indication: Muscle spasticity
     Dosage: 10 MILLIGRAM- 0.33 DAY(1-0-1)
     Route: 048
  20. BACLOFEN [Concomitant]
     Active Substance: BACLOFEN
     Dosage: 10 MILLIGRAM 0.5 DAY
     Route: 048
  21. COMIRNATY [Concomitant]
     Active Substance: TOZINAMERAN
     Dosage: 1ST VACCINE
     Route: 065
     Dates: start: 20210409, end: 20210409
  22. COMIRNATY [Concomitant]
     Active Substance: TOZINAMERAN
     Dosage: 2ND VACCINE
     Route: 065
     Dates: start: 20210521, end: 20210521
  23. NOVALGINA [Concomitant]
     Active Substance: ACETAMINOPHEN\CAFFEINE
     Dosage: UNK
     Route: 065

REACTIONS (22)
  - Osteonecrosis [Not Recovered/Not Resolved]
  - Lipoedema [Not Recovered/Not Resolved]
  - Cervical spinal stenosis [Recovered/Resolved]
  - Pneumonia [Unknown]
  - Platelet count decreased [Recovered/Resolved]
  - Peripheral swelling [Recovering/Resolving]
  - Tumour marker increased [Recovered/Resolved]
  - Hypertension [Unknown]
  - Dermatitis allergic [Recovered/Resolved]
  - Palpitations [Recovered/Resolved]
  - Nasopharyngitis [Recovered/Resolved]
  - Dry eye [Not Recovered/Not Resolved]
  - Otitis media [Recovered/Resolved]
  - Muscle spasms [Recovered/Resolved]
  - Seasonal allergy [Recovered/Resolved]
  - COVID-19 [Recovered/Resolved]
  - Balance disorder [Recovered/Resolved]
  - Erythema [Recovered/Resolved]
  - Arthralgia [Recovered/Resolved]
  - Rash pruritic [Recovered/Resolved]
  - Fatigue [Not Recovered/Not Resolved]
  - Asthenia [Recovered/Resolved]

NARRATIVE: CASE EVENT DATE: 20180515
